FAERS Safety Report 7375572-8 (Version None)
Quarter: 2011Q1

REPORT INFORMATION
  Report Type: 
  Country: None (occurrence: None)
  Receive Date: 20110325
  Receipt Date: 20110316
  Transmission Date: 20110831
  Serious: No
  Sender: FDA-Public Use
  Company Number: US-BAYER-2011-023733

PATIENT
  Sex: Female

DRUGS (1)
  1. BEYAZ [Suspect]

REACTIONS (4)
  - MENORRHAGIA [None]
  - DYSMENORRHOEA [None]
  - NAUSEA [None]
  - VAGINAL HAEMORRHAGE [None]
